FAERS Safety Report 4758921-6 (Version None)
Quarter: 2005Q3

REPORT INFORMATION
  Report Type: 
  Country: None (occurrence: None)
  Receive Date: 20050901
  Receipt Date: 20050825
  Transmission Date: 20060218
  Serious: Yes (Other)
  Sender: FDA-Public Use
  Company Number: 200517555GDDC

PATIENT
  Age: 58 Year
  Sex: Female

DRUGS (4)
  1. TAXOTERE [Suspect]
     Indication: BREAST CANCER
     Route: 042
  2. INSULIN NOS [Concomitant]
     Dosage: DOSE: UNK
  3. DIAMICRON [Concomitant]
     Dosage: DOSE: UNK
  4. CORVASAL [Concomitant]
     Dosage: DOSE: UNK

REACTIONS (1)
  - RASH PSORIAFORM [None]
